FAERS Safety Report 8604385-1 (Version None)
Quarter: 2012Q3

REPORT INFORMATION
  Report Type: 
  Country: None (occurrence: None)
  Receive Date: 20120820
  Receipt Date: 20120809
  Transmission Date: 20120928
  Serious: Yes (Other)
  Sender: FDA-Public Use
  Company Number: US-BAYER-2012-036832

PATIENT
  Age: 35 Year
  Sex: Female
  Weight: 86.168 kg

DRUGS (6)
  1. YASMIN [Suspect]
     Indication: CONTRACEPTION
     Dosage: UNK
     Dates: start: 20060401
  2. EXCEDRIN (MIGRAINE) [Concomitant]
     Indication: MIGRAINE
     Dosage: 500 MG, PRN
     Dates: start: 20010101
  3. YAZ [Suspect]
     Indication: MIGRAINE
     Dosage: UNK
     Dates: start: 20081201, end: 20100401
  4. PHENTERMINE [Concomitant]
     Indication: WEIGHT CONTROL
     Dosage: 30 MG, UNK
  5. YASMIN [Suspect]
     Indication: MIGRAINE
  6. YAZ [Suspect]
     Indication: CONTRACEPTION

REACTIONS (6)
  - INJURY [None]
  - CHOLELITHIASIS [None]
  - ABDOMINAL PAIN [None]
  - NAUSEA [None]
  - VOMITING [None]
  - PAIN [None]
